FAERS Safety Report 7417560-9 (Version None)
Quarter: 2011Q2

REPORT INFORMATION
  Report Type: 
  Country: None (occurrence: None)
  Receive Date: 20110415
  Receipt Date: 20110208
  Transmission Date: 20111010
  Serious: No
  Sender: FDA-Public Use
  Company Number: US-B.I. PHARMACEUTICALS,INC./RIDGEFIELD-2011-BP-05297BP

PATIENT
  Sex: Male

DRUGS (15)
  1. AMITRIPTYLENE [Concomitant]
     Dosage: 25 MG
     Route: 048
  2. DIGOXIN [Concomitant]
     Indication: CARDIAC DISORDER
     Dosage: 0.125 MG
     Route: 048
  3. CARVIDOLOL [Concomitant]
     Indication: CARDIAC DISORDER
     Dosage: 3.125 MG
     Route: 048
  4. POTASSIUM CHLORIDE [Concomitant]
     Indication: PROPHYLAXIS
     Dosage: 20 MEQ
     Route: 048
  5. PRADAXA [Suspect]
     Indication: ANTICOAGULANT THERAPY
     Dosage: 300 MG
     Route: 048
     Dates: start: 20110203
  6. LASIX [Concomitant]
     Indication: DIURETIC THERAPY
     Dosage: 40 MG
     Route: 048
  7. DOXYCYCLINE [Concomitant]
     Indication: PNEUMONIA
     Dosage: 200 MG
     Route: 048
  8. GLIPIZIDE [Concomitant]
     Indication: BLOOD GLUCOSE ABNORMAL
     Dosage: 1.25 MG
     Route: 048
     Dates: start: 20110201
  9. LIPITOR [Concomitant]
     Indication: BLOOD CHOLESTEROL INCREASED
     Dosage: 40 MG
     Route: 048
  10. PREDNISONE [Concomitant]
     Indication: INFECTION
     Dosage: 5 MG
     Route: 048
     Dates: start: 20010101
  11. HYDROCODONE [Suspect]
     Indication: ARTHRITIS
     Route: 048
     Dates: start: 20110201
  12. GABAPENTIN [Concomitant]
     Indication: ARTHRITIS
     Dosage: 300 MG
     Route: 048
  13. SEROXAT [Concomitant]
     Dosage: 10 MG
     Route: 048
  14. LEVOTHYROXINE [Concomitant]
     Indication: THYROID DISORDER
     Dosage: 175 MG
     Route: 048
  15. CYMBALTA [Concomitant]
     Indication: DEPRESSION
     Dosage: 60 MG
     Route: 048

REACTIONS (1)
  - SOMNOLENCE [None]
